FAERS Safety Report 6065067-6 (Version None)
Quarter: 2009Q1

REPORT INFORMATION
  Report Type: 
  Country: None (occurrence: None)
  Receive Date: 20090204
  Receipt Date: 20090122
  Transmission Date: 20090719
  Serious: Yes (Hospitalization, Other)
  Sender: FDA-Public Use
  Company Number: US-ELI_LILLY_AND_COMPANY-US200901000310

PATIENT
  Sex: Male
  Weight: 86.168 kg

DRUGS (13)
  1. ALIMTA [Suspect]
     Indication: NON-SMALL CELL LUNG CANCER STAGE IV
     Dosage: 500 MG, UNK
     Dates: start: 20081201, end: 20081201
  2. VANCOMYCIN HYDROCHLORIDE [Suspect]
     Indication: FEBRILE NEUTROPENIA
     Dosage: UNK, UNK
     Dates: start: 20081201, end: 20081201
  3. CARBOPLATIN [Concomitant]
     Dosage: AUC 5
     Dates: start: 20081201, end: 20091201
  4. VITAMIN B-12 [Concomitant]
  5. FOLIC ACID [Concomitant]
  6. CORTICOSTEROID NOS [Concomitant]
  7. INSULIN ASPART [Concomitant]
     Dosage: 5 U, 3/D, BEFORE MEALS
  8. METFORMIN [Concomitant]
     Dosage: 500 MG, EACH MORNING
  9. METFORMIN [Concomitant]
     Dosage: 1000 MG, EACH EVENING
  10. PROTONIX [Concomitant]
     Dosage: 40 MG, DAILY (1/D)
  11. HUMULIN N [Concomitant]
     Dosage: 10 U, EACH EVENING
  12. PERCOCET [Concomitant]
     Dosage: EVERY 4 HOURS AS NEEDED
  13. INSULIN, REGULAR [Concomitant]
     Dosage: SLIDING SCALE

REACTIONS (9)
  - ANAEMIA [None]
  - ATELECTASIS [None]
  - FEBRILE NEUTROPENIA [None]
  - INTERSTITIAL LUNG DISEASE [None]
  - LEUKOCYTOCLASTIC VASCULITIS [None]
  - ORAL CANDIDIASIS [None]
  - PLEURAL EFFUSION [None]
  - PNEUMONIA [None]
  - PULMONARY EMBOLISM [None]
